FAERS Safety Report 11411125 (Version 1)
Quarter: 2015Q3

REPORT INFORMATION
  Report Type: Spontaneous
  Country: US (occurrence: US)
  Receive Date: 20150821
  Receipt Date: 20150821
  Transmission Date: 20151125
  Serious: No
  Sender: FDA-Public Use
  Company Number: US-ELI_LILLY_AND_COMPANY-US200907004367

PATIENT
  Age: 59 Year
  Sex: Male

DRUGS (3)
  1. HUMULIN 70/30 [Suspect]
     Active Substance: INSULIN HUMAN
     Indication: TYPE 2 DIABETES MELLITUS
     Dates: end: 20080714
  2. GLUCOSE [Concomitant]
     Active Substance: DEXTROSE
  3. HUMULIN 70/30 [Suspect]
     Active Substance: INSULIN HUMAN
     Dates: end: 20080714

REACTIONS (5)
  - Feeling abnormal [Unknown]
  - Intentional product use issue [Unknown]
  - Blood glucose decreased [Recovered/Resolved]
  - Fatigue [Unknown]
  - Intentional product misuse [Unknown]

NARRATIVE: CASE EVENT DATE: 200804
